FAERS Safety Report 11821079 (Version 8)
Quarter: 2017Q3

REPORT INFORMATION
  Report Type: Spontaneous
  Country: JP (occurrence: JP)
  Receive Date: 20151210
  Receipt Date: 20170713
  Transmission Date: 20171127
  Serious: Yes (Hospitalization, Other)
  Sender: FDA-Public Use
  Company Number: PHJP2015JP021742

PATIENT
  Age: 43 Year
  Sex: Male
  Weight: 84 kg

DRUGS (5)
  1. DDAVP [Concomitant]
     Active Substance: DESMOPRESSIN ACETATE
     Indication: HYPOPITUITARISM
     Dosage: 12.5 UG, QD (5 UG IN THE MORNING, AND 7.5 UG IN THE EVENING)
     Route: 065
  2. SANDOSTATIN [Suspect]
     Active Substance: OCTREOTIDE ACETATE
     Indication: ACROMEGALY
     Dosage: 100 UG, UNK
     Route: 058
  3. LEVOTHYROXINE. [Concomitant]
     Active Substance: LEVOTHYROXINE
     Indication: HYPOPITUITARISM
     Dosage: 50 UG, QD
     Route: 065
  4. SANDOSTATINA LAR IM INJECTION [Suspect]
     Active Substance: OCTREOTIDE ACETATE
     Indication: ACROMEGALY
     Dosage: 20 MG, QMO
     Route: 030
  5. HIDROCORTISON [Concomitant]
     Active Substance: HYDROCORTISONE
     Indication: HYPOPITUITARISM
     Dosage: 20 MG, QD (15 MG IN THE MORNING AND 5 MG IN THE EVENING)
     Route: 048

REACTIONS (7)
  - Diabetic ketoacidosis [Recovering/Resolving]
  - Type 2 diabetes mellitus [Recovering/Resolving]
  - Diabetes insipidus [Unknown]
  - Hyperglycaemia [Unknown]
  - Malaise [Recovering/Resolving]
  - Polydipsia [Recovering/Resolving]
  - Polyuria [Recovering/Resolving]
